FAERS Safety Report 15087778 (Version 1)
Quarter: 2018Q2

REPORT INFORMATION
  Report Type: Spontaneous
  Country: US (occurrence: US)
  Receive Date: 20180629
  Receipt Date: 20180629
  Transmission Date: 20180711
  Serious: No
  Sender: FDA-Public Use
  Company Number: US-CELGENEUS-USA-20180608946

PATIENT
  Age: 34 Year
  Sex: Female

DRUGS (3)
  1. PRENATAL [Concomitant]
     Active Substance: VITAMINS
     Indication: PRODUCT USED FOR UNKNOWN INDICATION
     Route: 048
  2. ENBREL [Concomitant]
     Active Substance: ETANERCEPT
     Indication: PSORIASIS
     Route: 065
  3. OTEZLA [Suspect]
     Active Substance: APREMILAST
     Indication: PSORIASIS
     Dosage: 60 MILLIGRAM
     Route: 048
     Dates: start: 20180418, end: 20180622

REACTIONS (2)
  - Psoriasis [Recovered/Resolved]
  - Drug dose omission [Unknown]

NARRATIVE: CASE EVENT DATE: 201804
